FAERS Safety Report 6609166-6 (Version None)
Quarter: 2010Q1

REPORT INFORMATION
  Report Type: 
  Country: None (occurrence: None)
  Receive Date: 20100224
  Receipt Date: 20100210
  Transmission Date: 20100710
  Serious: Yes (Hospitalization, Other)
  Sender: FDA-Public Use
  Company Number: ISPH-2010-0017

PATIENT
  Age: 83 Year
  Sex: Female
  Weight: 58 kg

DRUGS (19)
  1. AZASITE [Suspect]
     Indication: BLEPHARITIS
     Dosage: 2 GTT, BID, OPHTHALMIC 1GTT, BID, OPHTHALMIC
     Route: 047
     Dates: start: 20100113, end: 20100114
  2. AZASITE [Suspect]
     Indication: EYE PRURITUS
     Dosage: 2 GTT, BID, OPHTHALMIC 1GTT, BID, OPHTHALMIC
     Route: 047
     Dates: start: 20100113, end: 20100114
  3. AZASITE [Suspect]
     Indication: EYE SWELLING
     Dosage: 2 GTT, BID, OPHTHALMIC 1GTT, BID, OPHTHALMIC
     Route: 047
     Dates: start: 20100113, end: 20100114
  4. AZASITE [Suspect]
     Indication: HYPERSENSITIVITY
     Dosage: 2 GTT, BID, OPHTHALMIC 1GTT, BID, OPHTHALMIC
     Route: 047
     Dates: start: 20100113, end: 20100114
  5. AZASITE [Suspect]
     Indication: BLEPHARITIS
     Dosage: 2 GTT, BID, OPHTHALMIC 1GTT, BID, OPHTHALMIC
     Route: 047
     Dates: start: 20100115, end: 20100116
  6. AZASITE [Suspect]
     Indication: EYE PRURITUS
     Dosage: 2 GTT, BID, OPHTHALMIC 1GTT, BID, OPHTHALMIC
     Route: 047
     Dates: start: 20100115, end: 20100116
  7. AZASITE [Suspect]
     Indication: EYE SWELLING
     Dosage: 2 GTT, BID, OPHTHALMIC 1GTT, BID, OPHTHALMIC
     Route: 047
     Dates: start: 20100115, end: 20100116
  8. AZASITE [Suspect]
     Indication: HYPERSENSITIVITY
     Dosage: 2 GTT, BID, OPHTHALMIC 1GTT, BID, OPHTHALMIC
     Route: 047
     Dates: start: 20100115, end: 20100116
  9. ATENOLOL [Concomitant]
  10. LEVOTHYROXINE SODIUM [Concomitant]
  11. CENTRUM SILVER (VITAMIN NOS, ZINC) [Concomitant]
  12. OSCAL (CALCIUM) [Concomitant]
  13. VITAMIN D (ERGOCALIFEROL) [Concomitant]
  14. VALTREX [Concomitant]
  15. KEFLEX [Concomitant]
  16. RECLAST [Concomitant]
  17. EYE ITCH [Concomitant]
  18. ALEVE [Concomitant]
  19. TYLENOL [Concomitant]

REACTIONS (11)
  - BLEPHARITIS [None]
  - ERYSIPELAS [None]
  - EYE DISCHARGE [None]
  - EYE PAIN [None]
  - EYE PRURITUS [None]
  - EYE SWELLING [None]
  - HERPES SIMPLEX OPHTHALMIC [None]
  - HYPERSENSITIVITY [None]
  - PERIORBITAL CELLULITIS [None]
  - RASH PUSTULAR [None]
  - SCAB [None]
